FAERS Safety Report 6141243-9 (Version None)
Quarter: 2009Q2

REPORT INFORMATION
  Report Type: 
  Country: None (occurrence: None)
  Receive Date: 20090402
  Receipt Date: 20090325
  Transmission Date: 20091009
  Serious: Yes (Hospitalization)
  Sender: FDA-Public Use
  Company Number: US-WATSON-2009-01990

PATIENT
  Age: 25 Year
  Sex: Male

DRUGS (7)
  1. INFED [Suspect]
     Indication: IRON DEFICIENCY ANAEMIA
     Dosage: 100 MG, OVER 2 HRS (USED 1 DOSE ONLY)
     Route: 042
     Dates: start: 20090303, end: 20090303
  2. INFED [Suspect]
     Dosage: 25 MG, SINGLE  (TEST DOSE 25MG IN 50ML NS OVER 15 MIN, OBSERVED FOR 15 MIN)
     Route: 042
     Dates: start: 20090303, end: 20090303
  3. TPN [Concomitant]
     Indication: SUPPLEMENTATION THERAPY
     Dosage: UNK
     Route: 065
     Dates: end: 20090321
  4. WARFARIN SODIUM [Concomitant]
     Indication: THROMBOSIS PROPHYLAXIS
     Dosage: 10 MG, 5 DAYS A WEEK
     Route: 048
     Dates: start: 20080101
  5. WARFARIN SODIUM [Concomitant]
     Dosage: 12.5 MG, 2 DAYS A WEEK
     Route: 048
     Dates: start: 20080101
  6. ENTOCORT EC [Concomitant]
     Indication: CROHN'S DISEASE
     Dosage: 6 MG, DAILY
     Route: 048
     Dates: start: 20090217
  7. PREVACID [Concomitant]
     Indication: GASTROOESOPHAGEAL REFLUX DISEASE
     Dosage: 30 MG, DAILY
     Route: 048
     Dates: start: 20081201

REACTIONS (2)
  - BACTERAEMIA [None]
  - PYREXIA [None]
